FAERS Safety Report 4432946-2 (Version None)
Quarter: 2004Q3

REPORT INFORMATION
  Report Type: 
  Country: None (occurrence: None)
  Receive Date: 20040823
  Receipt Date: 20040812
  Transmission Date: 20050211
  Serious: Yes (Hospitalization)
  Sender: FDA-Public Use
  Company Number: 2004UW17292

PATIENT
  Sex: Male

DRUGS (3)
  1. PULMICORT [Suspect]
  2. SYMBICORT TURBUHALER ^ASTRAZENECA^ [Suspect]
     Dosage: 2 PUFF BID IH
     Route: 055
  3. VENTOLIN  /00139502/ [Suspect]

REACTIONS (2)
  - ASTHMA [None]
  - MEDICATION ERROR [None]
